FAERS Safety Report 9424502 (Version 1)
Quarter: 2013Q3

REPORT INFORMATION
  Report Type: Spontaneous
  Country: US (occurrence: None)
  Receive Date: 20130726
  Receipt Date: 20130726
  Transmission Date: 20140515
  Serious: Yes (Hospitalization)
  Sender: FDA-Public Use
  Company Number: None

PATIENT
  Age: 72 Year
  Sex: Male

DRUGS (2)
  1. PAMABROM [Suspect]
  2. METFORMIN [Suspect]
     Indication: DIABETES MELLITUS
     Route: 048

REACTIONS (2)
  - Renal failure [None]
  - Lactic acidosis [None]
